FAERS Safety Report 14352230 (Version 1)
Quarter: 2018Q1

REPORT INFORMATION
  Report Type: Report from Study
  Country: JP (occurrence: JP)
  Receive Date: 20180104
  Receipt Date: 20180104
  Transmission Date: 20180509
  Serious: Yes (Hospitalization)
  Sender: FDA-Public Use
  Company Number: JP-BAUSCH-BL-2017-035836

PATIENT
  Age: 80 Year
  Sex: Male
  Weight: 59.07 kg

DRUGS (7)
  1. RFB002+ VETEPORFIN PHOTODYNAMIC THERAPY [Suspect]
     Active Substance: RANIBIZUMAB\VERTEPORFIN
     Indication: POLYPOIDAL CHOROIDAL VASCULOPATHY
     Route: 050
     Dates: start: 20140603
  2. CANDESARTAN. [Concomitant]
     Active Substance: CANDESARTAN
     Indication: PRODUCT USED FOR UNKNOWN INDICATION
     Dates: start: 20150519
  3. LUCENTIS [Suspect]
     Active Substance: RANIBIZUMAB
     Indication: POLYPOIDAL CHOROIDAL VASCULOPATHY
     Route: 050
     Dates: start: 20140603
  4. AMLODIPINE [Concomitant]
     Active Substance: AMLODIPINE BESYLATE
     Indication: PRODUCT USED FOR UNKNOWN INDICATION
     Dates: start: 20150512
  5. ATENOLOL. [Concomitant]
     Active Substance: ATENOLOL
     Indication: PRODUCT USED FOR UNKNOWN INDICATION
     Dates: start: 20150519
  6. LUCENTIS [Suspect]
     Active Substance: RANIBIZUMAB
     Route: 050
     Dates: start: 20140702
  7. LUCENTIS [Suspect]
     Active Substance: RANIBIZUMAB
     Route: 050
     Dates: start: 20140730, end: 20140730

REACTIONS (1)
  - Cerebral infarction [Recovering/Resolving]

NARRATIVE: CASE EVENT DATE: 20151225
